FAERS Safety Report 9288501 (Version 1)
Quarter: 2013Q2

REPORT INFORMATION
  Report Type: Spontaneous
  Country: US (occurrence: US)
  Receive Date: 20130514
  Receipt Date: 20130514
  Transmission Date: 20140414
  Serious: No
  Sender: FDA-Public Use
  Company Number: US-OPTIMER PHARMACEUTICALS, INC.-20110034

PATIENT
  Sex: 0

DRUGS (24)
  1. DIFICID [Suspect]
     Indication: CLOSTRIDIUM DIFFICILE COLITIS
     Dosage: 200 MG, BID
     Route: 048
     Dates: start: 20110907, end: 20110914
  2. VANCOMYCIN [Concomitant]
  3. QUESTRAN [Concomitant]
  4. LACTINEX [Concomitant]
  5. MEGESTROL [Concomitant]
  6. DIFLUCAN [Concomitant]
  7. CLONAZEPAM [Concomitant]
  8. CLOTRIMAZOLE [Concomitant]
  9. ALIGN [Concomitant]
  10. LONOX [Concomitant]
  11. PILOCARPINE [Concomitant]
  12. QVAR [Concomitant]
  13. RESTASIS [Concomitant]
  14. TRAZODONE [Concomitant]
  15. ASPIRIN [Concomitant]
  16. CITALOPRAM [Concomitant]
  17. HYDROCODONE W/ACETAMINOPHEN [Concomitant]
  18. LORATADINE [Concomitant]
  19. OMEPRAZOLE [Concomitant]
  20. PREDNISONE [Concomitant]
  21. RANITIDINE [Concomitant]
  22. SPIRIVA [Concomitant]
  23. VENTOLIN [Concomitant]
  24. TRILYTE [Concomitant]

REACTIONS (4)
  - Clostridium difficile colitis [Not Recovered/Not Resolved]
  - Disease recurrence [Not Recovered/Not Resolved]
  - Diarrhoea [Not Recovered/Not Resolved]
  - Incorrect drug administration duration [Unknown]
